FAERS Safety Report 21029508 (Version 1)
Quarter: 2022Q2

REPORT INFORMATION
  Report Type: Report from Study
  Country: US (occurrence: US)
  Receive Date: 20220630
  Receipt Date: 20220630
  Transmission Date: 20220721
  Serious: Yes (Hospitalization)
  Sender: FDA-Public Use
  Company Number: US-ABBVIE-22P-163-4448773-00

PATIENT
  Age: 70 Year
  Sex: Female
  Weight: 72.1 kg

DRUGS (6)
  1. IBRUTINIB [Suspect]
     Active Substance: IBRUTINIB
     Indication: Chronic lymphocytic leukaemia
     Dosage: D 1-28, C 1-19
     Route: 048
     Dates: start: 20220301, end: 20220523
  2. IBRUTINIB [Suspect]
     Active Substance: IBRUTINIB
     Dosage: D 1-28, C 1-19
     Route: 048
  3. VENETOCLAX [Suspect]
     Active Substance: VENETOCLAX
     Indication: Chronic lymphocytic leukaemia
     Dosage: 20MG  D1-7 C3; 50MG  D8-14, C3; 100 MG D15-21, C3; 200MG D22-28, C3; 400MG D1-28, C4-14
     Route: 048
     Dates: start: 20210524, end: 20220424
  4. OBINUTUZUMAB [Concomitant]
     Active Substance: OBINUTUZUMAB
     Indication: Chronic lymphocytic leukaemia
     Dosage: 100 MG DAY 1, C1; 900 MG DAY 2, C1; 1000 MG IV  DAY 8 + 15, C1; DAY 1, C 2-6
     Route: 042
     Dates: start: 20210301
  5. HUMAN IMMUNOGLOBULIN G [Concomitant]
     Active Substance: HUMAN IMMUNOGLOBULIN G
     Indication: Hypogammaglobulinaemia
     Route: 042
  6. DOXYCYCLINE [Concomitant]
     Active Substance: DOXYCYCLINE
     Indication: Product used for unknown indication
     Dates: start: 20220523

REACTIONS (1)
  - Febrile neutropenia [Recovered/Resolved]

NARRATIVE: CASE EVENT DATE: 20220524
